FAERS Safety Report 15943523 (Version 1)
Quarter: 2019Q1

REPORT INFORMATION
  Report Type: Spontaneous
  Country: US (occurrence: US)
  Receive Date: 20190122
  Receipt Date: 20190122
  Transmission Date: 20190417
  Serious: No
  Sender: FDA-Public Use
  Company Number: None

PATIENT
  Age: 81 Year
  Sex: Female
  Weight: 76.2 kg

DRUGS (1)
  1. FORTEO [Suspect]
     Active Substance: TERIPARATIDE
     Dosage: INJECT 20MCG SUBCUTANEOUSLY EVERY DAY AS DIRECTED
     Route: 058
     Dates: start: 201812

REACTIONS (1)
  - Fatigue [None]
